FAERS Safety Report 8942175 (Version 4)
Quarter: 2013Q1

REPORT INFORMATION
  Report Type: Report from Study
  Country: JP (occurrence: JP)
  Receive Date: 20121203
  Receipt Date: 20130301
  Transmission Date: 20140127
  Serious: Yes (Death, Hospitalization, Other)
  Sender: FDA-Public Use
  Company Number: JP-009507513-1211JPN011765

PATIENT
  Age: 72 Year
  Sex: Male
  Weight: 65 kg

DRUGS (23)
  1. PEGINTRON [Suspect]
     Indication: CHRONIC HEPATITIS C
     Dosage: 1.5 MICROGRAM PER KILOGRAM
     Route: 058
     Dates: start: 20120807, end: 20120924
  2. PEGINTRON [Suspect]
     Dosage: 80 MICROGRAM PER KILOGRAM
     Route: 058
     Dates: start: 20120925, end: 20121030
  3. REBETOL [Suspect]
     Indication: CHRONIC HEPATITIS C
     Dosage: 800 MG, QD
     Route: 048
     Dates: start: 20120807, end: 20120827
  4. REBETOL [Suspect]
     Dosage: 600 MG, QD
     Route: 048
     Dates: start: 20120828, end: 20120910
  5. REBETOL [Suspect]
     Dosage: 400 MG, QD
     Route: 048
     Dates: start: 20120911, end: 20120924
  6. REBETOL [Suspect]
     Dosage: 600 MG, QD
     Route: 048
     Dates: start: 20120925, end: 20121029
  7. REBETOL [Suspect]
     Dosage: 400 MG,QD
     Route: 048
     Dates: start: 20121030, end: 20121102
  8. TELAVIC [Suspect]
     Indication: CHRONIC HEPATITIS C
     Dosage: 1500 MG, QD
     Route: 048
     Dates: start: 20120807, end: 20120924
  9. TELAVIC [Suspect]
     Dosage: 1000MG,QD
     Route: 048
     Dates: start: 20120925, end: 20121029
  10. PREDNISOLONE [Suspect]
     Indication: RASH
     Dosage: 30 MG/DAY
     Route: 048
     Dates: start: 20121009, end: 20121011
  11. PREDNISOLONE [Suspect]
     Dosage: 20 MG, QD
     Route: 048
     Dates: start: 20121012, end: 20121029
  12. PREDNISOLONE [Suspect]
     Dosage: 15 MG, UNK
     Route: 048
     Dates: start: 20121030, end: 20121109
  13. BLOPRESS [Concomitant]
     Indication: HYPERTENSION
     Dosage: 4 MG, QD
     Route: 048
     Dates: end: 20121106
  14. VOLTAREN SR [Concomitant]
     Indication: PROPHYLAXIS
     Dosage: 37.5 MG/DAY, AS NEEDED
     Route: 048
     Dates: start: 20120807, end: 20121106
  15. VOLTAREN SR [Concomitant]
     Dosage: SINGLE USE DURING 37.5MG/DAY.
     Route: 048
     Dates: end: 20121106
  16. PROMAC (POLAPREZINC) [Concomitant]
     Indication: PROPHYLAXIS
     Dosage: 150 MG, QD
     Route: 048
     Dates: start: 20120807, end: 20121106
  17. ALOSENN (SENNA) [Concomitant]
     Indication: CONSTIPATION
     Dosage: 0.5 G/DAY, PRN
     Route: 048
     Dates: start: 20120809, end: 20121110
  18. DERMOVATE [Concomitant]
     Dosage: Q.S., PROPER QUANTITY
     Route: 062
     Dates: start: 20120918
  19. LIDOMEX [Concomitant]
     Indication: RASH
     Dosage: PROPER QUANTITY
     Route: 062
     Dates: start: 20121016
  20. MICONAZOLE [Concomitant]
     Indication: ORAL CANDIDIASIS
     Dosage: Q.S,. PROPER QUANTITY
     Route: 048
     Dates: start: 20121023
  21. PURSENNID (SENNOSIDES) [Concomitant]
     Indication: CONSTIPATION
     Dosage: 36 MG, QD
     Route: 048
     Dates: start: 20121030
  22. FEBURIC [Concomitant]
     Dosage: 40 MG, QD
     Route: 048
  23. ZYRTEC [Concomitant]
     Indication: PRURITUS
     Dosage: 10 MG, QD
     Route: 048
     Dates: start: 20120814, end: 20121110

REACTIONS (3)
  - Cerebral haemorrhage [Fatal]
  - Rash [Recovering/Resolving]
  - Decreased appetite [Recovered/Resolved]
